FAERS Safety Report 8530263-2 (Version None)
Quarter: 2012Q3

REPORT INFORMATION
  Report Type: 
  Country: None (occurrence: None)
  Receive Date: 20120723
  Receipt Date: 20120711
  Transmission Date: 20120928
  Serious: No
  Sender: FDA-Public Use
  Company Number: US-JNJFOC-20120707062

PATIENT
  Sex: Female
  Weight: 73.94 kg

DRUGS (3)
  1. FENTANYL-100 [Suspect]
     Indication: PRODUCT USED FOR UNKNOWN INDICATION
     Route: 062
  2. FENTANYL-100 [Suspect]
     Indication: PRODUCT USED FOR UNKNOWN INDICATION
     Route: 062
  3. FENTANYL-100 [Suspect]
     Indication: BACK PAIN
     Dosage: NDC # 0781-7244-55
     Route: 062
     Dates: start: 20110101

REACTIONS (4)
  - PRODUCT QUALITY ISSUE [None]
  - WRONG TECHNIQUE IN DRUG USAGE PROCESS [None]
  - POOR QUALITY DRUG ADMINISTERED [None]
  - ADVERSE EVENT [None]
